FAERS Safety Report 4889374-5 (Version None)
Quarter: 2006Q1

REPORT INFORMATION
  Report Type: 
  Country: None (occurrence: None)
  Receive Date: 20060120
  Receipt Date: 20060110
  Transmission Date: 20060701
  Serious: Yes (Other)
  Sender: FDA-Public Use
  Company Number: 2005156075

PATIENT
  Age: 63 Year
  Sex: Male
  Weight: 95.2554 kg

DRUGS (1)
  1. LYRICA [Suspect]
     Indication: DIABETIC NEUROPATHY
     Dosage: 150 MG  (75 MG, 2 IN 1D)
     Dates: start: 20050101, end: 20051110

REACTIONS (2)
  - CHOLELITHIASIS [None]
  - MUSCULOSKELETAL CHEST PAIN [None]
